FAERS Safety Report 12140107 (Version 1)
Quarter: 2016Q1

REPORT INFORMATION
  Report Type: Spontaneous
  Country: US (occurrence: None)
  Receive Date: 20160302
  Receipt Date: 20160302
  Transmission Date: 20160526
  Serious: No
  Sender: FDA-Public Use
  Company Number: None

PATIENT
  Age: 56 Year
  Sex: Female
  Weight: 90.72 kg

DRUGS (10)
  1. BREO ELLIPTA [Suspect]
     Active Substance: FLUTICASONE FUROATE\VILANTEROL TRIFENATATE
     Indication: IMMUNODEFICIENCY COMMON VARIABLE
     Dosage: ONE PUFF ONCE DAILY INHALATION
     Route: 055
     Dates: start: 20160201, end: 20160224
  2. MONTELUKAST [Concomitant]
     Active Substance: MONTELUKAST SODIUM
  3. BIOTIN [Concomitant]
     Active Substance: BIOTIN
  4. HIZENTRA [Concomitant]
     Active Substance: HUMAN IMMUNOGLOBULIN G
  5. POTASSIUM [Concomitant]
     Active Substance: POTASSIUM
  6. TRIAMATERENE/HCTZ [Concomitant]
  7. TOPIRAMATE. [Concomitant]
     Active Substance: TOPIRAMATE
  8. FLUTICASONE [Concomitant]
     Active Substance: FLUTICASONE\FLUTICASONE PROPIONATE
  9. PROBIOTIC [Concomitant]
     Active Substance: PROBIOTICS NOS
  10. SERTRALINE [Concomitant]
     Active Substance: SERTRALINE HYDROCHLORIDE

REACTIONS (8)
  - Oral mucosal erythema [None]
  - Oropharyngeal pain [None]
  - Glossodynia [None]
  - Cough [None]
  - Respiratory disorder [None]
  - Impaired work ability [None]
  - Chapped lips [None]
  - Blister [None]

NARRATIVE: CASE EVENT DATE: 20160218
